FAERS Safety Report 16863209 (Version 2)
Quarter: 2019Q3

REPORT INFORMATION
  Report Type: Spontaneous
  Country: IT (occurrence: IT)
  Receive Date: 20190927
  Receipt Date: 20190930
  Transmission Date: 20191005
  Serious: Yes (Death, Other)
  Sender: FDA-Public Use
  Company Number: IT-SA-2019SA266675

PATIENT
  Age: 63 Year
  Sex: Male

DRUGS (3)
  1. REPLAGAL [Concomitant]
     Active Substance: AGALSIDASE ALFA
     Indication: FABRY^S DISEASE
     Dosage: UNK
     Dates: start: 2011
  2. LEVOSIMENDAN [Suspect]
     Active Substance: LEVOSIMENDAN
     Indication: VENTRICULAR DYSFUNCTION
     Route: 042
  3. FABRAZYME [Suspect]
     Active Substance: AGALSIDASE BETA
     Indication: FABRY^S DISEASE
     Dosage: 1 MG/KG, QOW
     Route: 065
     Dates: start: 201601

REACTIONS (2)
  - Condition aggravated [Fatal]
  - Ventricular dysfunction [Fatal]
